FAERS Safety Report 11743432 (Version 4)
Quarter: 2019Q1

REPORT INFORMATION
  Report Type: Spontaneous
  Country: ES (occurrence: ES)
  Receive Date: 20151116
  Receipt Date: 20190219
  Transmission Date: 20190417
  Serious: Yes (Other)
  Sender: FDA-Public Use
  Company Number: ES-SA-2015SA180622

PATIENT
  Age: 62 Year
  Sex: Female

DRUGS (2)
  1. SEVELAMER CARBONATE. [Suspect]
     Active Substance: SEVELAMER CARBONATE
     Indication: NEPHROPATHY
  2. SEVELAMER CARBONATE. [Suspect]
     Active Substance: SEVELAMER CARBONATE
     Indication: HYPERPHOSPHATAEMIA
     Dosage: UNK UNK,UNK
     Route: 065

REACTIONS (3)
  - Crystal deposit intestine [Unknown]
  - Appendicitis perforated [Unknown]
  - Peritonitis [Unknown]
